FAERS Safety Report 25274213 (Version 1)
Quarter: 2025Q2

REPORT INFORMATION
  Report Type: Report from Study
  Country: CA (occurrence: CA)
  Receive Date: 20250506
  Receipt Date: 20250506
  Transmission Date: 20250716
  Serious: Yes (Life-Threatening, Hospitalization, Other)
  Sender: PFIZER
  Company Number: CA-PFIZER INC-202500092073

PATIENT
  Sex: Male

DRUGS (9)
  1. HYDROCORTISONE [Suspect]
     Active Substance: HYDROCORTISONE
     Route: 064
  2. BUDESONIDE\FORMOTEROL FUMARATE [Suspect]
     Active Substance: BUDESONIDE\FORMOTEROL FUMARATE
     Route: 064
  3. ORENCIA [Suspect]
     Active Substance: ABATACEPT
     Route: 064
  4. ORENCIA [Suspect]
     Active Substance: ABATACEPT
     Route: 064
  5. ORENCIA [Suspect]
     Active Substance: ABATACEPT
     Dosage: 125 MG, WEEKLY
     Route: 063
  6. CALCIUM CARBONATE [Concomitant]
     Active Substance: CALCIUM CARBONATE
     Dosage: UNK, EVERY 3 WEEKS
     Route: 064
  7. CYANOCOBALAMIN [Concomitant]
     Active Substance: CYANOCOBALAMIN
     Route: 064
  8. FLUDROCORTISONE ACETATE [Concomitant]
     Active Substance: FLUDROCORTISONE ACETATE
  9. VITAMIN D NOS [Concomitant]
     Active Substance: CHOLECALCIFEROL\ERGOCALCIFEROL
     Route: 064

REACTIONS (5)
  - Exposure via breast milk [Unknown]
  - Foetal exposure during pregnancy [Unknown]
  - Platelet count decreased [Recovering/Resolving]
  - Blood bilirubin increased [Recovering/Resolving]
  - Blood glucose decreased [Recovering/Resolving]
